FAERS Safety Report 8906254 (Version 1)
Quarter: 2012Q4

REPORT INFORMATION
  Report Type: Spontaneous
  Country: US (occurrence: None)
  Receive Date: 20121112
  Receipt Date: 20121112
  Transmission Date: 20130627
  Serious: Yes (Disabling, Other)
  Sender: FDA-Public Use
  Company Number: None

PATIENT
  Age: 60 Year
  Sex: Female
  Weight: 26.31 kg

DRUGS (1)
  1. CIPROFLOXACIN [Suspect]
     Indication: AUGMENTATION MAMMOPLASTY
     Dosage: 500mgper, 1 cpr a las 8-20, po
     Route: 048
     Dates: start: 20120202, end: 20120206

REACTIONS (10)
  - Hypoaesthesia [None]
  - Paraesthesia [None]
  - Peripheral coldness [None]
  - Peripheral coldness [None]
  - Insomnia [None]
  - Depression [None]
  - Alopecia [None]
  - Toxicity to various agents [None]
  - Malaise [None]
  - Feeling abnormal [None]
